FAERS Safety Report 9064978 (Version 1)
Quarter: 2013Q1

REPORT INFORMATION
  Report Type: Spontaneous
  Country: US (occurrence: US)
  Receive Date: 20130128
  Receipt Date: 20130128
  Transmission Date: 20140127
  Serious: Yes (Other)
  Sender: FDA-Public Use
  Company Number: US-RB-048744-13

PATIENT
  Age: 64 Year
  Sex: Female

DRUGS (3)
  1. MUCINEX DM [Suspect]
     Indication: PRODUCT USED FOR UNKNOWN INDICATION
     Dosage: PATIENT TOOK 11 TABLETS OF THE PRODUCT
     Route: 048
     Dates: start: 20130110
  2. MUCINEX DM [Suspect]
  3. SIMVASTATIN [Concomitant]
     Indication: BLOOD CHOLESTEROL

REACTIONS (4)
  - Memory impairment [Not Recovered/Not Resolved]
  - Cough [Not Recovered/Not Resolved]
  - Accidental overdose [Unknown]
  - Expired drug administered [Unknown]
